FAERS Safety Report 5044558-0 (Version None)
Quarter: 2006Q2

REPORT INFORMATION
  Report Type: 
  Country: None (occurrence: None)
  Receive Date: 20060629
  Receipt Date: 20060616
  Transmission Date: 20061013
  Serious: Yes (Hospitalization)
  Sender: FDA-Public Use
  Company Number: 2006062262

PATIENT
  Age: 69 Year
  Sex: Male

DRUGS (26)
  1. SUTENT [Suspect]
     Indication: RENAL CELL CARCINOMA STAGE UNSPECIFIED
     Dosage: 50 MG (50 MG, 1 IN 1D), ORAL
     Route: 048
     Dates: start: 20060115, end: 20060212
  2. SUTENT [Suspect]
     Indication: RENAL CELL CARCINOMA STAGE UNSPECIFIED
     Dosage: 50 MG (50 MG, 1 IN 1D), ORAL
     Route: 048
     Dates: start: 20060228, end: 20060328
  3. SUTENT [Suspect]
     Indication: RENAL CELL CARCINOMA STAGE UNSPECIFIED
     Dosage: 50 MG (50 MG, 1 IN 1D), ORAL
     Route: 048
     Dates: start: 20060414, end: 20060508
  4. CEFTRIAXONE [Concomitant]
  5. AMOXICILINA + CLAVULANICO (AMOXICILLIN TRIHYDRATE, CLAVULANIC ACID) [Concomitant]
  6. PANTOPRAZOLE SODIUM [Concomitant]
  7. ESOMEPRAZOLE (ESOMEPRAZOLE) [Concomitant]
  8. HYDROXYZINE [Concomitant]
  9. MACROGOL (MACROGOL) [Concomitant]
  10. LACRYVISC (CARBOMER) [Concomitant]
  11. BETAMETHASONE [Concomitant]
  12. PAROXETINE [Concomitant]
  13. CLONAZEPAM [Concomitant]
  14. AMITRIPTYLINE (AMITRIPTYLINE) [Concomitant]
  15. ACETAMINOPHEN [Concomitant]
  16. MICROLAX [Concomitant]
  17. VALACYCLOVIR [Concomitant]
  18. SULFADIAZINE (SULFADIAZINE0 [Concomitant]
  19. ZOLEDRONIC ACID (ZOLEDRONIC ACID) [Concomitant]
  20. ENOXAPARIN SODIUM [Concomitant]
  21. INSULIN [Concomitant]
  22. METHYLPREDNISOLONE [Concomitant]
  23. MORPHINE [Concomitant]
  24. LERCANIDIPINE [Concomitant]
  25. ACITRETIN [Concomitant]
  26. BLOOD TRANSFUSION, AUXILIARY PRODUCTS (BLOOD TRANSFUSION, AUXILIARY PR [Concomitant]

REACTIONS (9)
  - ANAEMIA [None]
  - CONJUNCTIVAL IRRITATION [None]
  - CONSTIPATION [None]
  - GLOSSITIS [None]
  - HYPOALBUMINAEMIA [None]
  - PAIN [None]
  - PENIS DISORDER [None]
  - SKIN LESION [None]
  - SKIN ULCER [None]
